FAERS Safety Report 24952269 (Version 4)
Quarter: 2025Q3

REPORT INFORMATION
  Report Type: Report from Study
  Country: US (occurrence: US)
  Receive Date: 20250210
  Receipt Date: 20250904
  Transmission Date: 20251021
  Serious: Yes (Other)
  Sender: ELI LILLY AND COMPANY
  Company Number: US-ELI_LILLY_AND_COMPANY-US202411007739

PATIENT
  Age: 85 Year
  Sex: Male
  Weight: 65.306 kg

DRUGS (4)
  1. KISUNLA [Suspect]
     Active Substance: DONANEMAB-AZBT
     Indication: Dementia Alzheimer^s type
     Route: 065
     Dates: start: 20241108
  2. KISUNLA [Suspect]
     Active Substance: DONANEMAB-AZBT
     Route: 065
  3. KISUNLA [Suspect]
     Active Substance: DONANEMAB-AZBT
     Route: 065
     Dates: start: 20250103, end: 20250103
  4. KISUNLA [Suspect]
     Active Substance: DONANEMAB-AZBT
     Route: 065
     Dates: start: 20250826

REACTIONS (15)
  - Amyloid related imaging abnormality-oedema/effusion [Recovering/Resolving]
  - Amyloid related imaging abnormality-microhaemorrhages and haemosiderin deposits [Recovering/Resolving]
  - Dementia Alzheimer^s type [Not Recovered/Not Resolved]
  - Salivary hypersecretion [Unknown]
  - Back pain [Unknown]
  - Vertigo [Recovering/Resolving]
  - Pain in extremity [Not Recovered/Not Resolved]
  - Paranasal sinus hypersecretion [Recovering/Resolving]
  - Contusion [Recovering/Resolving]
  - Feeding disorder [Recovering/Resolving]
  - Tooth disorder [Unknown]
  - Weight decreased [Unknown]
  - Pain [Unknown]
  - Asthma [Unknown]
  - Headache [Unknown]

NARRATIVE: CASE EVENT DATE: 20241108
